FAERS Safety Report 8256029-9 (Version None)
Quarter: 2012Q2

REPORT INFORMATION
  Report Type: 
  Country: None (occurrence: None)
  Receive Date: 20120403
  Receipt Date: 20120326
  Transmission Date: 20120825
  Serious: Yes (Other)
  Sender: FDA-Public Use
  Company Number: US-ROCHE-1053186

PATIENT
  Sex: Female

DRUGS (1)
  1. AVASTIN [Suspect]
     Indication: OVARIAN STROMAL CANCER
     Route: 042

REACTIONS (8)
  - CARDIOTOXICITY [None]
  - HAEMATOTOXICITY [None]
  - PULMONARY TOXICITY [None]
  - OTOTOXICITY [None]
  - TOXICITY TO VARIOUS AGENTS [None]
  - NEUROTOXICITY [None]
  - PAIN [None]
  - GASTROINTESTINAL TOXICITY [None]
